FAERS Safety Report 19855597 (Version 1)
Quarter: 2021Q3

REPORT INFORMATION
  Report Type: Spontaneous
  Country: US (occurrence: US)
  Receive Date: 20210920
  Receipt Date: 20210920
  Transmission Date: 20211014
  Serious: Yes (Hospitalization)
  Sender: FDA-Public Use
  Company Number: None

PATIENT
  Age: 69 Year
  Sex: Female

DRUGS (8)
  1. CEFDINIR. [Concomitant]
     Active Substance: CEFDINIR
  2. LEVETIRACETA [Concomitant]
     Active Substance: LEVETIRACETAM
  3. FORTEO [Suspect]
     Active Substance: TERIPARATIDE
     Indication: MULTIPLE SCLEROSIS
     Route: 058
     Dates: start: 20200827
  4. CIPROFLOXACN [Concomitant]
     Active Substance: CIPROFLOXACIN
  5. BACLOFEN. [Concomitant]
     Active Substance: BACLOFEN
  6. VITAMIN B12 [Concomitant]
     Active Substance: CYANOCOBALAMIN
  7. COPAXONE [Concomitant]
     Active Substance: GLATIRAMER ACETATE
  8. VITAMIN D3 [Concomitant]
     Active Substance: CHOLECALCIFEROL

REACTIONS (1)
  - Infection [None]

NARRATIVE: CASE EVENT DATE: 20210919
